FAERS Safety Report 13345708 (Version 1)
Quarter: 2017Q1

REPORT INFORMATION
  Report Type: Spontaneous
  Country: US (occurrence: US)
  Receive Date: 20170316
  Receipt Date: 20170316
  Transmission Date: 20170428
  Serious: Yes (Hospitalization)
  Sender: FDA-Public Use
  Company Number: None

PATIENT
  Age: 65 Year
  Sex: Female

DRUGS (9)
  1. ASPIRIN. [Concomitant]
     Active Substance: ASPIRIN
  2. IBUPROFEN. [Concomitant]
     Active Substance: IBUPROFEN
  3. METFORMIN [Concomitant]
     Active Substance: METFORMIN HYDROCHLORIDE
  4. GLIPIZIDE. [Concomitant]
     Active Substance: GLIPIZIDE
  5. LISINOPRIL. [Concomitant]
     Active Substance: LISINOPRIL
  6. FUROSEMIDE. [Concomitant]
     Active Substance: FUROSEMIDE
  7. RANIBIZUMAB [Suspect]
     Active Substance: RANIBIZUMAB
     Route: 042
     Dates: start: 20140514
  8. NOVOLIN [Concomitant]
     Active Substance: INSULIN HUMAN
  9. ATENOLOL. [Concomitant]
     Active Substance: ATENOLOL

REACTIONS (1)
  - Hypoglycaemia [None]

NARRATIVE: CASE EVENT DATE: 20170224
